FAERS Safety Report 19292391 (Version 3)
Quarter: 2021Q4

REPORT INFORMATION
  Report Type: Spontaneous
  Country: IN (occurrence: IN)
  Receive Date: 20210524
  Receipt Date: 20211019
  Transmission Date: 20220303
  Serious: Yes (Life-Threatening, Hospitalization, Other)
  Sender: FDA-Public Use
  Company Number: IN-GLENMARK PHARMACEUTICALS-2021GMK054060

PATIENT
  Age: 69 Year
  Sex: Male

DRUGS (3)
  1. ROSUVASTATIN CALCIUM [Suspect]
     Active Substance: ROSUVASTATIN CALCIUM
     Indication: Product used for unknown indication
     Dosage: 40 MILLIGRAM, OD
     Route: 065
  2. CLOPIDOGREL [Concomitant]
     Active Substance: CLOPIDOGREL BISULFATE
     Indication: Product used for unknown indication
     Dosage: 75 MILLIGRAM, OD
     Route: 065
  3. ASPIRIN [Concomitant]
     Active Substance: ASPIRIN
     Indication: Product used for unknown indication
     Dosage: 75 MILLIGRAM, OD
     Route: 065

REACTIONS (8)
  - Hyperkalaemia [Recovering/Resolving]
  - Rhabdomyolysis [Recovered/Resolved]
  - Nodal rhythm [Recovered/Resolved]
  - Paraparesis [Recovered/Resolved]
  - Metabolic acidosis [Recovering/Resolving]
  - Acute kidney injury [Recovered/Resolved]
  - Myopathy [Recovered/Resolved]
  - Hepatic enzyme increased [Unknown]
